FAERS Safety Report 16830925 (Version 2)
Quarter: 2019Q3

REPORT INFORMATION
  Report Type: Spontaneous
  Country: NL (occurrence: NL)
  Receive Date: 20190920
  Receipt Date: 20190923
  Transmission Date: 20191005
  Serious: Yes (Other)
  Sender: FDA-Public Use
  Company Number: NL-TEVA-2019-NL-1110010

PATIENT
  Age: 67 Year
  Sex: Male
  Weight: 80 kg

DRUGS (8)
  1. OMEPRAZOL [Concomitant]
     Active Substance: OMEPRAZOLE
     Dosage: 1D1C
  2. FOSTER [Concomitant]
     Active Substance: BECLOMETHASONE\FORMOTEROL
     Dosage: 2-3D2I
  3. SPIRIVA [Concomitant]
     Active Substance: TIOTROPIUM BROMIDE MONOHYDRATE
     Dosage: 1D1I
  4. RIZATRIPTAN SMELTTABLET, 10 MG (MILLIGRAM) [Suspect]
     Active Substance: RIZATRIPTAN
     Indication: MIGRAINE
     Dosage: IF NECESSARY 1 TABLET A DAY IF YOU HAVE A HEADACHE, IF NECESSARY 1 EXTRA (MAX 2 TABLETS PER 24 HOUR
     Dates: start: 20181029, end: 20190305
  5. MACROGOL [Concomitant]
     Active Substance: POLYETHYLENE GLYCOLS
     Dosage: 1X DAILY 1/4 POUCH
  6. AVAMYS [Concomitant]
     Active Substance: FLUTICASONE FUROATE
     Dosage: 1D2I IBN
  7. METOPROLOL RET [Concomitant]
     Dosage: 25 MG (NOW 1X 0.5 TABLET DAILY)
  8. DULOXETINE 30 MG [Concomitant]
     Active Substance: DULOXETINE
     Dosage: 30 MG 1D1C

REACTIONS (3)
  - Atheroembolism [Not Recovered/Not Resolved]
  - Blue toe syndrome [Not Recovered/Not Resolved]
  - Petechiae [Not Recovered/Not Resolved]

NARRATIVE: CASE EVENT DATE: 20190305
